FAERS Safety Report 11806027 (Version 1)
Quarter: 2015Q4

REPORT INFORMATION
  Report Type: Spontaneous
  Country: US (occurrence: US)
  Receive Date: 20151207
  Receipt Date: 20151207
  Transmission Date: 20160305
  Serious: No
  Sender: FDA-Public Use
  Company Number: PHEH2015US025115

PATIENT
  Sex: Female

DRUGS (1)
  1. GLEEVEC [Suspect]
     Active Substance: IMATINIB MESYLATE
     Indication: CHRONIC MYELOID LEUKAEMIA
     Route: 065

REACTIONS (18)
  - Headache [Unknown]
  - Muscle spasms [Unknown]
  - Fatigue [Unknown]
  - Swelling face [Unknown]
  - Infection [Unknown]
  - Abdominal pain [Unknown]
  - Nausea [Unknown]
  - Weight increased [Unknown]
  - Amnesia [Unknown]
  - Skin discolouration [Unknown]
  - Eye swelling [Unknown]
  - Myalgia [Unknown]
  - Dyspnoea [Unknown]
  - Menorrhagia [Unknown]
  - Rash [Unknown]
  - Asthenia [Unknown]
  - Back pain [Unknown]
  - Pyrexia [Unknown]
